FAERS Safety Report 5031768-1 (Version None)
Quarter: 2006Q2

REPORT INFORMATION
  Report Type: 
  Country: None (occurrence: None)
  Receive Date: 20060619
  Receipt Date: 20050829
  Transmission Date: 20061013
  Serious: Yes (Death, Hospitalization)
  Sender: FDA-Public Use
  Company Number: 2006-143734-NL

PATIENT
  Age: 64 Year
  Sex: Male

DRUGS (8)
  1. DANAPAROID SODIUM [Suspect]
     Indication: DISSEMINATED INTRAVASCULAR COAGULATION
     Route: 042
     Dates: start: 20041013, end: 20041013
  2. DIAZEPAM [Concomitant]
  3. DEXAMETHASONE TAB [Concomitant]
  4. FAMOTIDINE [Concomitant]
  5. MIDAZOLAM [Concomitant]
  6. CYTARABINE [Concomitant]
  7. CEFTAZIDIME [Concomitant]
  8. RAMOSETRON HYDROCHLORIDE [Concomitant]

REACTIONS (1)
  - CEREBRAL HAEMORRHAGE [None]
